FAERS Safety Report 18113175 (Version 6)
Quarter: 2021Q4

REPORT INFORMATION
  Report Type: Spontaneous
  Country: US (occurrence: US)
  Receive Date: 20200805
  Receipt Date: 20211129
  Transmission Date: 20220303
  Serious: No
  Sender: FDA-Public Use
  Company Number: US-PFIZER INC-2020277438

PATIENT
  Age: 10 Year
  Sex: Female
  Weight: 27.67 kg

DRUGS (1)
  1. GENOTROPIN [Suspect]
     Active Substance: SOMATROPIN
     Indication: Silver-Russell syndrome
     Dosage: 0.9 MG, DAILY (0.5 MG DOSE WENT INTO THE PATIENT THEN ADMINISTER THE REMAINING 0.4 MG DOSE)
     Route: 058
     Dates: start: 20200714, end: 20200720

REACTIONS (5)
  - Off label use [Unknown]
  - Product use in unapproved indication [Unknown]
  - Drug dose omission by device [Unknown]
  - Poor quality device used [Unknown]
  - Device breakage [Unknown]

NARRATIVE: CASE EVENT DATE: 20200701
